FAERS Safety Report 25322215 (Version 2)
Quarter: 2025Q3

REPORT INFORMATION
  Report Type: Report from Study
  Country: US (occurrence: US)
  Receive Date: 20250516
  Receipt Date: 20250802
  Transmission Date: 20251020
  Serious: Yes (Hospitalization)
  Sender: ALEXION PHARMACEUTICALS
  Company Number: US-AstraZeneca-CH-00869066A

PATIENT
  Sex: Female

DRUGS (1)
  1. ULTOMIRIS [Suspect]
     Active Substance: RAVULIZUMAB-CWVZ
     Indication: Myasthenia gravis

REACTIONS (7)
  - Urinary tract infection [Unknown]
  - Spinal stenosis [Unknown]
  - Escherichia infection [Unknown]
  - Gait disturbance [Unknown]
  - Pain in extremity [Unknown]
  - Arthritis [Unknown]
  - Intervertebral disc disorder [Unknown]
